FAERS Safety Report 7372411-6 (Version None)
Quarter: 2011Q1

REPORT INFORMATION
  Report Type: 
  Country: None (occurrence: None)
  Receive Date: 20110324
  Receipt Date: 20100224
  Transmission Date: 20110831
  Serious: Yes (Death, Hospitalization, Other)
  Sender: FDA-Public Use
  Company Number: PHHY2010DE78146

PATIENT
  Sex: Male

DRUGS (1)
  1. EXTAVIA [Suspect]
     Indication: MULTIPLE SCLEROSIS
     Dosage: 250 UG, QOD
     Route: 058
     Dates: start: 20090225

REACTIONS (5)
  - CHOKING [None]
  - DYSARTHRIA [None]
  - APHASIA [None]
  - DYSPNOEA [None]
  - MULTIPLE SCLEROSIS RELAPSE [None]
